FAERS Safety Report 12977701 (Version 3)
Quarter: 2017Q1

REPORT INFORMATION
  Report Type: Spontaneous
  Country: US (occurrence: US)
  Receive Date: 20161128
  Receipt Date: 20170124
  Transmission Date: 20170428
  Serious: Yes (Other)
  Sender: FDA-Public Use
  Company Number: US-ASTRAZENECA-2016SF22934

PATIENT
  Age: 158 Day
  Sex: Female
  Weight: 4.6 kg

DRUGS (4)
  1. SYNAGIS [Suspect]
     Active Substance: PALIVIZUMAB
     Indication: ASPHYXIATING THORACIC DYSTROPHY
     Route: 030
     Dates: start: 20161116
  2. ZANTAC [Concomitant]
     Active Substance: RANITIDINE HYDROCHLORIDE
     Indication: GASTROOESOPHAGEAL REFLUX DISEASE
     Route: 048
  3. SYNAGIS [Suspect]
     Active Substance: PALIVIZUMAB
     Indication: CHRONIC OBSTRUCTIVE PULMONARY DISEASE
     Route: 030
     Dates: start: 20161116
  4. SYNAGIS [Suspect]
     Active Substance: PALIVIZUMAB
     Indication: THORACIC OUTLET SYNDROME
     Route: 030
     Dates: start: 20161116

REACTIONS (5)
  - Product use issue [Unknown]
  - Hyperoxia [Unknown]
  - Respiratory failure [Unknown]
  - Heart rate increased [Unknown]
  - Off label use [Unknown]

NARRATIVE: CASE EVENT DATE: 20161116
